FAERS Safety Report 6429845-3 (Version None)
Quarter: 2009Q4

REPORT INFORMATION
  Report Type: 
  Country: None (occurrence: None)
  Receive Date: 20091106
  Receipt Date: 20091026
  Transmission Date: 20100525
  Serious: Yes (Death, Other)
  Sender: FDA-Public Use
  Company Number: GT-WYE-H11204209

PATIENT
  Age: 74 Year
  Sex: Female

DRUGS (4)
  1. PANTECTA [Suspect]
     Indication: GASTRITIS
     Route: 048
     Dates: start: 20090301
  2. SUCRALFATE [Concomitant]
     Dosage: UNKNOWN
  3. VITAMINS NOS [Concomitant]
     Dosage: UNKNOWN
  4. METOCLOPRAMIDE [Concomitant]
     Dosage: UNKNOWN

REACTIONS (2)
  - ABDOMINAL MASS [None]
  - DEATH [None]
